FAERS Safety Report 10692582 (Version 1)
Quarter: 2015Q1

REPORT INFORMATION
  Report Type: Spontaneous
  Country: US (occurrence: None)
  Receive Date: 20150105
  Receipt Date: 20150105
  Transmission Date: 20150720
  Serious: Yes (Death)
  Sender: FDA-Public Use
  Company Number: None

PATIENT
  Age: 62 Year
  Sex: Male
  Weight: 81.65 kg

DRUGS (8)
  1. BENADRYL [Concomitant]
     Active Substance: DIPHENHYDRAMINE HYDROCHLORIDE
  2. GABAPENTIN. [Concomitant]
     Active Substance: GABAPENTIN
  3. LYRICA [Concomitant]
     Active Substance: PREGABALIN
  4. OXYCODONE [Concomitant]
     Active Substance: OXYCODONE
  5. VITAMIN [Concomitant]
     Active Substance: VITAMINS
  6. METHADONE HCL [Suspect]
     Active Substance: METHADONE HYDROCHLORIDE
     Indication: NEUROPATHY PERIPHERAL
     Route: 048
     Dates: start: 20140922, end: 20141016
  7. TAMSULOSIN [Concomitant]
     Active Substance: TAMSULOSIN
  8. LAXATIVE [Concomitant]
     Active Substance: UNSPECIFIED INGREDIENT

REACTIONS (9)
  - Renal impairment [None]
  - Confusional state [None]
  - Mobility decreased [None]
  - Lung disorder [None]
  - Toxicity to various agents [None]
  - Decreased appetite [None]
  - Asthenia [None]
  - Gait disturbance [None]
  - General physical health deterioration [None]
